FAERS Safety Report 9699029 (Version 1)
Quarter: 2013Q4

REPORT INFORMATION
  Report Type: Spontaneous
  Country: US (occurrence: None)
  Receive Date: 20131118
  Receipt Date: 20131118
  Transmission Date: 20140711
  Serious: Yes (Other)
  Sender: FDA-Public Use
  Company Number: 2010S1000469

PATIENT
  Age: 66 Year
  Sex: Female
  Weight: 77.11 kg

DRUGS (8)
  1. FLEET PHOSPHO-SODA [Suspect]
     Indication: COLONOSCOPY
     Route: 048
  2. ASPIRIN (ACETYLSALICYLIC ACID) [Concomitant]
  3. TIAZAC (DILTIAZEM HYDROCHLORIDE) [Concomitant]
  4. SYNTHROID (LEVOTHYROXINE SODIUM) [Concomitant]
  5. TRIAMTEREME/HCTZ (HYDROCHLOROTHIAZIDE, TRIAMTERENE) [Concomitant]
  6. PRILOSEC [Concomitant]
  7. TUMS (CALCIUM CARBONATE, MAGNESIUM CARBONATE, MAGNESIUM TRISILICATE) [Concomitant]
  8. MULTIVITAMIN (ERGOCALCIFEROL, ASCORBIC ACID, PYRIDOXINE HYDROCHLORIDE, THIAMINE HYDROCHLORIDE, RETINOL, RIBOFLAVIN, NICOTINAMINDE, CALCIUM PANTOTHENATE) [Concomitant]

REACTIONS (6)
  - Dehydration [None]
  - Renal failure acute [None]
  - Acute prerenal failure [None]
  - Viral infection [None]
  - Renal failure chronic [None]
  - Tubulointerstitial nephritis [None]
